FAERS Safety Report 4408394-8 (Version None)
Quarter: 2004Q3

REPORT INFORMATION
  Report Type: 
  Country: None (occurrence: None)
  Receive Date: 20040722
  Receipt Date: 20040706
  Transmission Date: 20050211
  Serious: Yes (Hospitalization)
  Sender: FDA-Public Use
  Company Number: US-2004-028273

PATIENT
  Age: 43 Year
  Sex: Female

DRUGS (3)
  1. BETASERON [Suspect]
     Indication: MULTIPLE SCLEROSIS
     Dosage: 8 MIU, EVERY 2D, SUBCUTANEOUS
     Route: 058
     Dates: start: 20030922, end: 20040515
  2. PROVIGIL [Concomitant]
  3. FLEXERIL [Concomitant]

REACTIONS (2)
  - POSTOPERATIVE INFECTION [None]
  - VAGINAL OPERATION [None]
